FAERS Safety Report 24083299 (Version 1)
Quarter: 2024Q3

REPORT INFORMATION
  Report Type: Spontaneous
  Country: FR (occurrence: FR)
  Receive Date: 20240712
  Receipt Date: 20240712
  Transmission Date: 20241017
  Serious: Yes (Other)
  Sender: AUROBINDO
  Company Number: FR-AUROBINDO-AUR-APL-2024-033751

PATIENT
  Age: 27 Year
  Sex: Female

DRUGS (2)
  1. ASPIRIN [Suspect]
     Active Substance: ASPIRIN
     Indication: Pre-eclampsia
     Dosage: UNK
     Route: 065
  2. PREDNISOLONE [Suspect]
     Active Substance: PREDNISOLONE
     Indication: Adverse event
     Dosage: 20 MILLIGRAM, DAILY
     Route: 048

REACTIONS (5)
  - Foetal growth restriction [Unknown]
  - Hypertension [Unknown]
  - Proteinuria [Unknown]
  - Exposure during pregnancy [Unknown]
  - Nephropathy [Recovering/Resolving]
